FAERS Safety Report 9135270 (Version 3)
Quarter: 2013Q3

REPORT INFORMATION
  Report Type: Spontaneous
  Country: IT (occurrence: IT)
  Receive Date: 20130304
  Receipt Date: 20130814
  Transmission Date: 20140515
  Serious: Yes (Death)
  Sender: FDA-Public Use
  Company Number: IT-CELGENEUS-083-21880-12113122

PATIENT
  Age: 71 Year
  Sex: Male

DRUGS (4)
  1. REVLIMID [Suspect]
     Indication: PLASMA CELL MYELOMA
     Dosage: 25 MILLIGRAM
     Route: 048
     Dates: start: 20120116, end: 20120205
  2. LANSOPRAZOLE [Concomitant]
     Indication: PLASMA CELL MYELOMA
     Dosage: 30 MILLIGRAM
     Route: 065
     Dates: start: 20100712, end: 20120220
  3. DEXAMETHASONE [Concomitant]
     Indication: PLASMA CELL MYELOMA
     Dosage: 2.8571 MILLIGRAM
     Route: 065
     Dates: start: 20110526, end: 20120220
  4. TICLOPIDINA [Concomitant]
     Indication: CEREBROVASCULAR ACCIDENT
     Dosage: 75 MILLIGRAM
     Route: 065
     Dates: start: 20110324, end: 2012

REACTIONS (1)
  - Plasma cell myeloma [Fatal]
